FAERS Safety Report 8672458 (Version 2)
Quarter: 2012Q4

REPORT INFORMATION
  Report Type: 
  Country: DE (occurrence: DE)
  Receive Date: 20120719
  Receipt Date: 20121127
  Transmission Date: 20130627
  Serious: Yes (Life-Threatening, Hospitalization)
  Sender: FDA-Public Use
  Company Number: DE-US-EMD SERONO, INC.-7147762

PATIENT
  Age: 54 Year
  Sex: Female

DRUGS (1)
  1. REBIF [Suspect]
     Indication: MULTIPLE SCLEROSIS
     Route: 058
     Dates: start: 200911

REACTIONS (3)
  - Pulmonary embolism [Recovered/Resolved]
  - Syncope [Recovered/Resolved]
  - Skull fracture [Unknown]
